FAERS Safety Report 18512917 (Version 1)
Quarter: 2020Q4

REPORT INFORMATION
  Report Type: Spontaneous
  Country: US (occurrence: US)
  Receive Date: 20201117
  Receipt Date: 20201117
  Transmission Date: 20210114
  Serious: No
  Sender: FDA-Public Use
  Company Number: US-PFIZER INC-2020449429

PATIENT
  Age: 76 Year
  Sex: Female
  Weight: 86.64 kg

DRUGS (2)
  1. EXEMESTANE. [Suspect]
     Active Substance: EXEMESTANE
     Indication: BREAST CANCER FEMALE
     Dosage: 25 MG, 1X/DAY
     Route: 048
  2. PRIMIDONE. [Interacting]
     Active Substance: PRIMIDONE
     Indication: FAMILIAL TREMOR
     Dosage: 150 MG, 2X/DAY (3 TABLETS, TWICE DAILY)
     Route: 048

REACTIONS (2)
  - Therapeutic product effect decreased [Unknown]
  - Drug interaction [Unknown]
